FAERS Safety Report 4782871-2 (Version None)
Quarter: 2005Q3

REPORT INFORMATION
  Report Type: 
  Country: None (occurrence: None)
  Receive Date: 20050928
  Receipt Date: 20050928
  Transmission Date: 20060218
  Serious: No
  Sender: FDA-Public Use
  Company Number: None

PATIENT
  Age: 46 Year
  Sex: Male
  Weight: 79 kg

DRUGS (1)
  1. ATAZANAVIR 200MG BMS [Suspect]
     Indication: HIV INFECTION
     Dosage: 400MG DAILY PO
     Route: 048
     Dates: start: 20050126, end: 20050913

REACTIONS (1)
  - HYPERBILIRUBINAEMIA [None]
